FAERS Safety Report 24709113 (Version 1)
Quarter: 2024Q4

REPORT INFORMATION
  Report Type: Spontaneous
  Country: US (occurrence: US)
  Receive Date: 20241208
  Receipt Date: 20241208
  Transmission Date: 20250115
  Serious: No
  Sender: JOHNSON AND JOHNSON
  Company Number: US-JNJFOC-20241053777

PATIENT
  Age: 14 Year
  Sex: Male

DRUGS (3)
  1. BALVERSA [Suspect]
     Active Substance: ERDAFITINIB
     Indication: Brain neoplasm malignant
     Dosage: FEW MONTHS
     Route: 048
     Dates: start: 202408
  2. ADVIL [Concomitant]
     Active Substance: IBUPROFEN
     Indication: Product used for unknown indication
  3. ALEVE [Concomitant]
     Active Substance: NAPROXEN SODIUM
     Indication: Product used for unknown indication

REACTIONS (9)
  - Pain [Unknown]
  - Gait disturbance [Unknown]
  - Alopecia [Unknown]
  - Onychomadesis [Unknown]
  - Myalgia [Unknown]
  - Blood phosphorus increased [Unknown]
  - Off label use [Unknown]
  - Off label use [Unknown]
  - Off label use [Unknown]
